FAERS Safety Report 5403503-6 (Version None)
Quarter: 2007Q3

REPORT INFORMATION
  Report Type: 
  Country: None (occurrence: None)
  Receive Date: 20070730
  Receipt Date: 20070724
  Transmission Date: 20080115
  Serious: Yes (Hospitalization)
  Sender: FDA-Public Use
  Company Number: 2007SP014813

PATIENT
  Age: 5 Year
  Sex: Male
  Weight: 24 kg

DRUGS (3)
  1. DESLORATADINE [Suspect]
     Indication: RHINITIS ALLERGIC
     Dates: start: 20040101, end: 20070703
  2. VENTOLIN [Concomitant]
  3. FLIXOTIDE [Concomitant]

REACTIONS (1)
  - SYNCOPE VASOVAGAL [None]
